FAERS Safety Report 9295601 (Version 1)
Quarter: 2013Q1

REPORT INFORMATION
  Report Type: Spontaneous
  Country: US (occurrence: US)
  Receive Date: 20130103
  Receipt Date: 20130103
  Transmission Date: 20140127
  Serious: Yes (Life-Threatening, Other)
  Sender: FDA-Public Use
  Company Number: DSA_56091_2012

PATIENT
  Age: 28 Year
  Sex: Male

DRUGS (2)
  1. XENAZINE [Suspect]
     Indication: HUNTINGTON^S DISEASE
     Route: 048
     Dates: start: 201109, end: 201202
  2. SERTRALINE [Suspect]
     Route: 048
     Dates: start: 201109

REACTIONS (3)
  - Intentional overdose [None]
  - Depression [None]
  - Suicidal ideation [None]
